FAERS Safety Report 6483792-X (Version None)
Quarter: 2009Q4

REPORT INFORMATION
  Report Type: 
  Country: None (occurrence: None)
  Receive Date: 20091209
  Receipt Date: 20091203
  Transmission Date: 20100525
  Serious: Yes (Hospitalization)
  Sender: FDA-Public Use
  Company Number: JP-ASTRAZENECA-2009SE02394

PATIENT
  Age: 45 Year
  Sex: Male
  Weight: 81 kg

DRUGS (11)
  1. OMEPRAL [Suspect]
     Indication: DUODENAL ULCER
     Route: 048
     Dates: start: 20090303, end: 20090331
  2. OMEPRAL [Suspect]
     Indication: HELICOBACTER INFECTION
     Route: 048
     Dates: start: 20090303, end: 20090331
  3. OMEPRAL [Suspect]
     Route: 048
     Dates: start: 20090402, end: 20090408
  4. OMEPRAL [Suspect]
     Route: 048
     Dates: start: 20090402, end: 20090408
  5. SAWACILLIN [Suspect]
     Indication: HELICOBACTER INFECTION
     Route: 048
     Dates: start: 20090402, end: 20090408
  6. KLARICID [Suspect]
     Indication: HELICOBACTER INFECTION
     Route: 048
     Dates: start: 20090402, end: 20090408
  7. THIATON [Concomitant]
     Indication: ANALGESIC THERAPY
     Route: 048
     Dates: start: 20090303, end: 20090309
  8. SELBEX [Concomitant]
     Indication: GASTROINTESTINAL DISORDER
     Route: 048
     Dates: start: 20090303, end: 20090309
  9. GASTROM [Concomitant]
     Indication: GASTROINTESTINAL DISORDER
     Route: 048
     Dates: start: 20090402, end: 20090408
  10. GASTER [Concomitant]
     Indication: DUODENAL ULCER
     Route: 048
     Dates: start: 20090409, end: 20090413
  11. BARACLUDE [Concomitant]
     Indication: HEPATITIS B
     Route: 048
     Dates: start: 20090730

REACTIONS (6)
  - CONDITION AGGRAVATED [None]
  - HEPATIC FUNCTION ABNORMAL [None]
  - HEPATIC STEATOSIS [None]
  - HEPATITIS B [None]
  - NODULE [None]
  - PULMONARY ARTERIOVENOUS FISTULA [None]
